FAERS Safety Report 17468907 (Version 1)
Quarter: 2020Q1

REPORT INFORMATION
  Report Type: Spontaneous
  Country: CN (occurrence: CN)
  Receive Date: 20200227
  Receipt Date: 20200227
  Transmission Date: 20200409
  Serious: Yes (Hospitalization)
  Sender: FDA-Public Use
  Company Number: CN-BAXTER-2020BAX004038

PATIENT
  Age: 5 Year
  Sex: Male
  Weight: 17.2 kg

DRUGS (25)
  1. ETOPOSIDE. [Suspect]
     Active Substance: ETOPOSIDE
     Dosage: DOSE RE-INTRODUCED, ETOPOSIDE  + 0.9 % SODIUM CHLORIDE (NS)
     Route: 041
     Dates: start: 202002
  2. DOXORUBICIN HYDROCHLORIDE. [Suspect]
     Active Substance: DOXORUBICIN HYDROCHLORIDE
     Dosage: DOSE RE-INTRODUCED, DOXORUBICIN HYDROCHLORIDE+ 0.9% SODIUM CHLORIDE (NS)
     Route: 041
     Dates: start: 202002
  3. ONDANSETRON HYDROCHLORIDE. [Suspect]
     Active Substance: ONDANSETRON HYDROCHLORIDE
     Dosage: DOSE RE-INTRODUCED, ONDANSETRON HYDROCHLORIDE +0.9 % SODIUM CHLORIDE (NS)
     Route: 041
     Dates: start: 202002
  4. 0.9% SODIUM CHLORIDE INJECTION [Suspect]
     Active Substance: SODIUM CHLORIDE
     Dosage: IFOSFAMIDE 2100 MG+0.9% SODIUM CHLORIDE (NS) 263 ML, DAY 1 TO DAY 3
     Route: 041
     Dates: start: 20200205, end: 20200207
  5. 0.9% SODIUM CHLORIDE INJECTION [Suspect]
     Active Substance: SODIUM CHLORIDE
     Dosage: ETOPOSIDE 105 MG+0.9% SODIUM CHLORIDE (NS) 420 ML, DAY 1 TO DAY 3
     Route: 041
     Dates: start: 20200205, end: 20200207
  6. 0.9% SODIUM CHLORIDE INJECTION [Suspect]
     Active Substance: SODIUM CHLORIDE
     Dosage: DOSE RE-INTRODUCED, DOXORUBICIN HYDROCHLORIDE + 0.9% SODIUM CHLORIDE (NS)
     Route: 041
     Dates: start: 202002
  7. DOXORUBICIN HYDROCHLORIDE. [Suspect]
     Active Substance: DOXORUBICIN HYDROCHLORIDE
     Indication: PRIMITIVE NEUROECTODERMAL TUMOUR
     Dosage: DOXORUBICIN HYDROCHLORIDE 14 MG+ 0.9% SODIUM CHLORIDE (NS) 280 ML, DAY 1 TO DAY 3
     Route: 041
     Dates: start: 20200205, end: 20200207
  8. VINCRISTINE SULFATE. [Suspect]
     Active Substance: VINCRISTINE SULFATE
     Indication: PRIMITIVE NEUROECTODERMAL TUMOUR
     Dosage: VINCRISTINE SULFATE 1 MG+ 0.9% SODIUM CHLORIDE (NS) 20 ML, DAY 1
     Route: 042
     Dates: start: 20200205, end: 20200205
  9. VINCRISTINE SULFATE. [Suspect]
     Active Substance: VINCRISTINE SULFATE
     Dosage: DOSE RE-INTRODUCED, VINCRISTINE SULFATE + 0.9% SODIUM CHLORIDE (NS)
     Route: 042
     Dates: start: 202002
  10. HOLOXAN [Suspect]
     Active Substance: IFOSFAMIDE
     Indication: PRIMITIVE NEUROECTODERMAL TUMOUR
     Dosage: IFOSFAMIDE 2100 MG+0.9% SODIUM CHLORIDE (NS) 263 ML, DAY 1 TO DAY 3
     Route: 041
     Dates: start: 20200205, end: 20200207
  11. 0.9% SODIUM CHLORIDE INJECTION [Suspect]
     Active Substance: SODIUM CHLORIDE
     Dosage: ONDANSETRON HYDROCHLORIDE 3.5 MG+0.9 % SODIUM CHLORIDE (NS) 25 ML, DAY 1 TO DAY 3
     Route: 041
     Dates: start: 20200205, end: 20200207
  12. 0.9% SODIUM CHLORIDE INJECTION [Suspect]
     Active Substance: SODIUM CHLORIDE
     Dosage: DOSE RE-INTRODUCED, ONDANSETRON HYDROCHLORIDE +0.9 % SODIUM CHLORIDE (NS)
     Route: 041
     Dates: start: 202002
  13. MESNA. [Suspect]
     Active Substance: MESNA
     Indication: PROPHYLAXIS
     Dosage: DAY 1 TO DAY 3
     Route: 042
     Dates: start: 20200205, end: 20200207
  14. HOLOXAN [Suspect]
     Active Substance: IFOSFAMIDE
     Dosage: DOSE RE-INTRODUCED, IFOSFAMIDE +0.9% SODIUM CHLORIDE (NS)
     Route: 041
     Dates: start: 202002
  15. 0.9% SODIUM CHLORIDE INJECTION [Suspect]
     Active Substance: SODIUM CHLORIDE
     Indication: MEDICATION DILUTION
     Dosage: VINCRISTINE SULFATE 1 MG+ 0.9% SODIUM CHLORIDE (NS) 20 ML, DAY 1
     Route: 042
     Dates: start: 20200205, end: 20200205
  16. 0.9% SODIUM CHLORIDE INJECTION [Suspect]
     Active Substance: SODIUM CHLORIDE
     Dosage: DOSE RE-INTRODUCED, IFOSFAMIDE +0.9% SODIUM CHLORIDE (NS)
     Route: 041
     Dates: start: 202002
  17. ETOPOSIDE. [Suspect]
     Active Substance: ETOPOSIDE
     Indication: PRIMITIVE NEUROECTODERMAL TUMOUR
     Dosage: ETOPOSIDE 105 MG + 0.9 % SODIUM CHLORIDE (NS) 420 ML, DAY 1 TO DAY 3
     Route: 041
     Dates: start: 20200205, end: 20200207
  18. MESNA. [Suspect]
     Active Substance: MESNA
     Dosage: DOSE RE-INTRODUCED
     Route: 042
     Dates: start: 202002
  19. 0.9% SODIUM CHLORIDE INJECTION [Suspect]
     Active Substance: SODIUM CHLORIDE
     Dosage: DOXORUBICIN HYDROCHLORIDE 14 MG+ 0.9% SODIUM CHLORIDE (NS) 280 ML, DAY 1 TO DAY 3
     Route: 041
     Dates: start: 20200205, end: 20200207
  20. 0.9% SODIUM CHLORIDE INJECTION [Suspect]
     Active Substance: SODIUM CHLORIDE
     Dosage: DOSE RE-INTRODUCED, ETOPOSIDE +0.9% SODIUM CHLORIDE (NS)
     Route: 041
     Dates: start: 202002
  21. DEXAMETHASONE SODIUM PHOSPHATE. [Suspect]
     Active Substance: DEXAMETHASONE SODIUM PHOSPHATE
     Indication: ANTIEMETIC SUPPORTIVE CARE
     Dosage: DAY 1 TO DAY 3
     Route: 041
     Dates: start: 20200205, end: 20200207
  22. 0.9% SODIUM CHLORIDE INJECTION [Suspect]
     Active Substance: SODIUM CHLORIDE
     Dosage: DOSE RE-INTRODUCED, VINCRISTINE SULFATE+ 0.9% SODIUM CHLORIDE (NS)
     Route: 042
     Dates: start: 202002
  23. DEXAMETHASONE SODIUM PHOSPHATE. [Suspect]
     Active Substance: DEXAMETHASONE SODIUM PHOSPHATE
     Dosage: DOSE RE-INTRODUCED
     Route: 041
     Dates: start: 202002
  24. ONDANSETRON HYDROCHLORIDE. [Suspect]
     Active Substance: ONDANSETRON HYDROCHLORIDE
     Indication: ANTIEMETIC SUPPORTIVE CARE
     Dosage: ONDANSETRON HYDROCHLORIDE 3.50 MG+0.9 % SODIUM CHLORIDE (NS) 25 ML, DAY 1 TO DAY 3
     Route: 041
     Dates: start: 20200205, end: 20200207
  25. PEGYLATED RECOMBINANT HUMAN GRANULOCYTE STIMULATING FACTOR [Concomitant]
     Indication: PROPHYLAXIS
     Route: 058
     Dates: start: 20200209

REACTIONS (2)
  - Pancytopenia [Recovering/Resolving]
  - Mouth ulceration [Recovered/Resolved]

NARRATIVE: CASE EVENT DATE: 20200212
